FAERS Safety Report 6967171-4 (Version None)
Quarter: 2010Q3

REPORT INFORMATION
  Report Type: 
  Country: None (occurrence: None)
  Receive Date: 20100907
  Receipt Date: 20100823
  Transmission Date: 20110219
  Serious: Yes (Hospitalization)
  Sender: FDA-Public Use
  Company Number: US-BAYER-201024757NA

PATIENT
  Age: 38 Year
  Sex: Female
  Weight: 66 kg

DRUGS (13)
  1. YASMIN [Suspect]
     Indication: CONTRACEPTION
     Route: 048
     Dates: start: 20020227, end: 20021001
  2. YASMIN [Suspect]
     Route: 048
     Dates: start: 20040501, end: 20080101
  3. YAZ [Suspect]
     Indication: CONTRACEPTION
     Route: 048
     Dates: start: 20080129, end: 20091101
  4. ALPRAZOLAM [Concomitant]
     Indication: ANXIETY
     Dates: end: 20080201
  5. PROTONIX [Concomitant]
     Indication: GASTROOESOPHAGEAL REFLUX DISEASE
     Dates: start: 20070601
  6. FLONASE [Concomitant]
     Indication: MULTIPLE ALLERGIES
     Dates: start: 19970101
  7. FUROSEMIDE [Concomitant]
     Dates: start: 20060401
  8. IBUPROFEN [Concomitant]
     Dates: start: 20060901
  9. XANAX [Concomitant]
     Indication: URTICARIA
  10. NEXIUM [Concomitant]
     Indication: GASTROOESOPHAGEAL REFLUX DISEASE
  11. CARAFATE [Concomitant]
     Indication: GASTROOESOPHAGEAL REFLUX DISEASE
  12. CHOLESTIN [Concomitant]
     Indication: GASTROOESOPHAGEAL REFLUX DISEASE
  13. REGLAN [Concomitant]
     Indication: GASTROOESOPHAGEAL REFLUX DISEASE

REACTIONS (4)
  - ABDOMINAL PAIN UPPER [None]
  - CHOLECYSTITIS CHRONIC [None]
  - NAUSEA [None]
  - VOMITING [None]
